FAERS Safety Report 6709263-0 (Version None)
Quarter: 2010Q2

REPORT INFORMATION
  Report Type: 
  Country: None (occurrence: None)
  Receive Date: 20100504
  Receipt Date: 20100422
  Transmission Date: 20101027
  Serious: Yes (Hospitalization, Other)
  Sender: FDA-Public Use
  Company Number: US-AMGEN-KDC407787

PATIENT
  Sex: Female

DRUGS (4)
  1. NEULASTA [Suspect]
     Indication: CHEMOTHERAPY
     Route: 058
     Dates: start: 20090823
  2. BEVACIZUMAB [Suspect]
     Route: 042
     Dates: start: 20090828
  3. CYCLOPHOSPHAMIDE [Suspect]
     Route: 042
     Dates: start: 20090828
  4. DOXORUBICIN HCL [Suspect]
     Route: 042
     Dates: start: 20090823

REACTIONS (6)
  - DYSPNOEA [None]
  - FATIGUE [None]
  - HAEMOGLOBIN DECREASED [None]
  - HAEMORRHAGE [None]
  - LEFT VENTRICULAR DYSFUNCTION [None]
  - RASH [None]
